FAERS Safety Report 6921496 (Version 2)
Quarter: 2012Q4

REPORT INFORMATION
  Report Type: 
  Country: US (occurrence: None)
  Receive Date: 20090217
  Receipt Date: 20120912
  Transmission Date: 20130627
  Serious: Yes (Hospitalization, Other)
  Sender: FDA-Public Use
  Company Number: 2009AP000446

PATIENT
  Age: 91 Year
  Sex: Female

DRUGS (9)
  1. AMIODARONE HYDROCHLORIDE [Suspect]
     Indication: ATRIAL FIBRILLATION
     Dosage: 400 MG; QD, 200 MG; QD
  2. AMIODARONE HYDROCHLORIDE [Suspect]
     Indication: ATRIAL FIBRILLATION
  3. WARFARIN [Concomitant]
  4. FUROSEMIDE [Concomitant]
  5. METOPROLOL [Concomitant]
  6. ASPIRIN [Concomitant]
  7. PRAVASTATIN [Concomitant]
  8. LEVOTHYROXINE SODIUM [Concomitant]
  9. DONEPEZIL HYDROCHLORIDE [Concomitant]

REACTIONS (17)
  - Nervous system disorder [None]
  - Dizziness [None]
  - Lethargy [None]
  - Confusional state [None]
  - Somnolence [None]
  - Heart rate decreased [None]
  - Disorientation [None]
  - Body temperature decreased [None]
  - Cardiac murmur [None]
  - Blood thyroid stimulating hormone increased [None]
  - Bradyphrenia [None]
  - Blood pressure diastolic decreased [None]
  - Oxygen saturation decreased [None]
  - Toxicity to various agents [None]
  - Disorientation [None]
  - Bradyphrenia [None]
  - Cardiac murmur [None]
